FAERS Safety Report 18652809 (Version 5)
Quarter: 2021Q2

REPORT INFORMATION
  Report Type: Report from Study
  Country: NO (occurrence: NO)
  Receive Date: 20201223
  Receipt Date: 20210602
  Transmission Date: 20210717
  Serious: Yes (Hospitalization)
  Sender: FDA-Public Use
  Company Number: NO-ROCHE-2606313

PATIENT
  Age: 54 Year
  Sex: Female
  Weight: 61.1 kg

DRUGS (22)
  1. BEVACIZUMAB. [Suspect]
     Active Substance: BEVACIZUMAB
     Indication: CERVIX CARCINOMA RECURRENT
     Dosage: ON DAY 1?DATE OF MOST RECENT DOSE OF BEVACIZUMAB PRIOR TO URINARY INFECTION DUE TO KLEBSIELLA PNEUMO
     Route: 042
     Dates: start: 20200507, end: 20210429
  2. PACLITAXEL. [Suspect]
     Active Substance: PACLITAXEL
     Route: 065
     Dates: start: 20200716, end: 20200716
  3. CARBOPLATIN. [Suspect]
     Active Substance: CARBOPLATIN
     Indication: CERVIX CARCINOMA RECURRENT
     Dosage: AUC 5?ON 11/NOV/2020, SHE RECEIVED MOST RECENT DOSE OF CARBOPLATIN PRIOR TO URINARY RETENTION AND UR
     Route: 042
     Dates: start: 20200820
  4. PANODIL [Concomitant]
     Active Substance: ACETAMINOPHEN
     Indication: PAIN
     Dates: start: 201909
  5. QUETIAPINE. [Concomitant]
     Active Substance: QUETIAPINE
     Dates: start: 202001
  6. NITROFURANTOIN. [Concomitant]
     Active Substance: NITROFURANTOIN
     Dates: start: 20201229
  7. ATEZOLIZUMAB. [Suspect]
     Active Substance: ATEZOLIZUMAB
     Indication: CERVIX CARCINOMA RECURRENT
     Dosage: ON DAY 1?DATE OF MOST RECENT DOSE OF ATEZOLIZUMAB PRIOR TO URINARY INFECTION DUE TO KLEBSIELLA PNEUM
     Route: 041
     Dates: start: 20200507, end: 20210429
  8. HIPREX (NORWAY) [Concomitant]
     Dates: start: 20201217, end: 20201228
  9. OXYCONTIN [Concomitant]
     Active Substance: OXYCODONE HYDROCHLORIDE
     Indication: PAIN
     Dates: start: 202002
  10. VANCOMYCIN [Concomitant]
     Active Substance: VANCOMYCIN
  11. TRIMETHOPRIM. [Concomitant]
     Active Substance: TRIMETHOPRIM
     Dates: start: 20200908, end: 20201216
  12. CIPROFLOXACIN. [Concomitant]
     Active Substance: CIPROFLOXACIN
     Route: 048
  13. PACLITAXEL. [Suspect]
     Active Substance: PACLITAXEL
     Indication: CERVIX CARCINOMA RECURRENT
     Dosage: DATE OF MOST RECENT DOSE OF PACLTIXAEL PRIOR TO URINARY INFECTION DUE TO KLEBSIELLA PNEUMONIAE, CLOS
     Route: 042
     Dates: start: 20200508
  14. LAXOBERAL [Concomitant]
     Active Substance: SODIUM PICOSULFATE
     Indication: CONSTIPATION
     Dosage: 10 DROPS
     Dates: start: 201909
  15. SOMAC [Concomitant]
     Active Substance: PANTOPRAZOLE SODIUM
     Dates: start: 20201021
  16. TARGINIQ ER [Concomitant]
     Active Substance: NALOXONE HYDROCHLORIDE\OXYCODONE HYDROCHLORIDE
     Indication: PAIN
     Dosage: 10/5 MG X 2
     Dates: start: 20200609
  17. BEVACIZUMAB. [Suspect]
     Active Substance: BEVACIZUMAB
     Route: 042
     Dates: start: 20200715, end: 20200715
  18. CISPLATIN. [Suspect]
     Active Substance: CISPLATIN
     Indication: CERVIX CARCINOMA RECURRENT
     Dosage: DATE OF MOST RECENT DOSE OF CISPLATIN PRIOR TO URINARY INFECTION DUE TO KLEBSIELLA PNEUMONIAE, CLOST
     Route: 042
     Dates: start: 20200508
  19. CISPLATIN. [Suspect]
     Active Substance: CISPLATIN
     Route: 065
     Dates: start: 20200716, end: 20200716
  20. ATEZOLIZUMAB. [Suspect]
     Active Substance: ATEZOLIZUMAB
     Route: 042
     Dates: start: 20200715
  21. IMOVANE [Concomitant]
     Active Substance: ZOPICLONE
     Dates: start: 201911
  22. LYRICA [Concomitant]
     Active Substance: PREGABALIN
     Indication: PAIN
     Dosage: 25 MG*2
     Dates: start: 20200619

REACTIONS (7)
  - Clostridial infection [Recovered/Resolved]
  - Urinary retention [Recovered/Resolved]
  - Urosepsis [Recovered/Resolved]
  - Urinary tract infection [Not Recovered/Not Resolved]
  - Urinary tract infection bacterial [Recovered/Resolved]
  - Proteinuria [Not Recovered/Not Resolved]
  - Thrombosis [Recovered/Resolved]

NARRATIVE: CASE EVENT DATE: 20200519
